FAERS Safety Report 17576246 (Version 2)
Quarter: 2020Q1

REPORT INFORMATION
  Report Type: Spontaneous
  Country: JP (occurrence: JP)
  Receive Date: 20200324
  Receipt Date: 20200326
  Transmission Date: 20200409
  Serious: Yes (Death, Other)
  Sender: FDA-Public Use
  Company Number: JP-ABBVIE-20K-087-3334151-00

PATIENT
  Age: 70 Year
  Sex: Male

DRUGS (4)
  1. CICLESONIDE [Concomitant]
     Active Substance: CICLESONIDE
     Indication: CORONA VIRUS INFECTION
  2. CICLESONIDE [Concomitant]
     Active Substance: CICLESONIDE
     Dosage: INCREASED
     Route: 055
  3. CEFTRIAXONE SODIUM HYDRATE [Concomitant]
     Active Substance: CEFTRIAXONE SODIUM
     Indication: CORONA VIRUS INFECTION
  4. KALETRA [Suspect]
     Active Substance: LOPINAVIR\RITONAVIR
     Indication: CORONA VIRUS INFECTION
     Route: 048

REACTIONS (3)
  - Off label use [Unknown]
  - Pneumothorax [Unknown]
  - Respiratory failure [Fatal]
